FAERS Safety Report 21139960 (Version 1)
Quarter: 2022Q3

REPORT INFORMATION
  Report Type: Spontaneous
  Country: NL (occurrence: NL)
  Receive Date: 20220728
  Receipt Date: 20220728
  Transmission Date: 20221026
  Serious: Yes (Other)
  Sender: FDA-Public Use
  Company Number: None

PATIENT
  Sex: Male

DRUGS (5)
  1. LISINOPRIL [Suspect]
     Active Substance: LISINOPRIL
     Indication: Hypertension
     Dosage: 10 MILLIGRAM DAILY; 1 PER DAY 1 PIECE, FORM STRENGTH 10MG / BRAND NAME NOT SPECIFIED, DURATION 9 DAY
     Dates: start: 20220525, end: 20220603
  2. TRULICITY [Concomitant]
     Active Substance: DULAGLUTIDE
     Indication: Product used for unknown indication
     Dosage: INJECTION LIQUID, FORM STRENGTH 3 MG/ML, 1.5MG/0.5ML (3MG/ML) PEN, THERAPY START DATE AND END DATE:
  3. HYDROCHLOROTHIAZIDE APOTEX [Concomitant]
     Indication: Product used for unknown indication
     Dosage: FORM STRENGTH 12.5 MG, THERAPY START DATE AND END DATE: ASKU
  4. SIMVASTATINE APOTEX [Concomitant]
     Indication: Product used for unknown indication
     Dosage: FORM STRENGTH 40 MG, THERAPY START DATE AND END DATE: ASKU
  5. METFORMIN HYDROCHLORIDE [Concomitant]
     Active Substance: METFORMIN HYDROCHLORIDE
     Indication: Product used for unknown indication
     Dosage: SR, FORM STRENGTH 500 MG, THERAPY START DATE AND END DATE: ASKU

REACTIONS (2)
  - Colitis ulcerative [Recovering/Resolving]
  - Condition aggravated [Recovering/Resolving]
